FAERS Safety Report 21298010 (Version 3)
Quarter: 2022Q4

REPORT INFORMATION
  Report Type: Report from Study
  Country: CN (occurrence: CN)
  Receive Date: 20220906
  Receipt Date: 20221229
  Transmission Date: 20230112
  Serious: Yes (Hospitalization)
  Sender: FDA-Public Use
  Company Number: CN-PFIZER INC-PV202200050490

PATIENT
  Age: 70 Year
  Sex: Female
  Weight: 66 kg

DRUGS (43)
  1. EPIRUBICIN HYDROCHLORIDE [Suspect]
     Active Substance: EPIRUBICIN HYDROCHLORIDE
     Indication: Triple negative breast cancer
     Dosage: 166 MG
     Dates: start: 20220628, end: 20220628
  2. EPIRUBICIN HYDROCHLORIDE [Suspect]
     Active Substance: EPIRUBICIN HYDROCHLORIDE
     Dosage: 166 MG
     Dates: start: 20220714, end: 20220714
  3. EPIRUBICIN HYDROCHLORIDE [Suspect]
     Active Substance: EPIRUBICIN HYDROCHLORIDE
     Dosage: 166 MG
     Dates: start: 20220728, end: 20220728
  4. PACLITAXEL [Suspect]
     Active Substance: PACLITAXEL
     Indication: Triple negative breast cancer
     Dosage: 184 MG
     Dates: start: 20220303, end: 20220303
  5. PACLITAXEL [Suspect]
     Active Substance: PACLITAXEL
     Dosage: 184 MG
     Dates: start: 20220310, end: 20220310
  6. PACLITAXEL [Suspect]
     Active Substance: PACLITAXEL
     Dosage: 184 MG
     Dates: start: 20220318, end: 20220318
  7. PACLITAXEL [Suspect]
     Active Substance: PACLITAXEL
     Dosage: 184 MG
     Dates: start: 20220331, end: 20220331
  8. PACLITAXEL [Suspect]
     Active Substance: PACLITAXEL
     Dosage: 184 MG
     Dates: start: 20220407, end: 20220407
  9. PACLITAXEL [Suspect]
     Active Substance: PACLITAXEL
     Dosage: 184 MG
     Dates: start: 20220418, end: 20220418
  10. PACLITAXEL [Suspect]
     Active Substance: PACLITAXEL
     Dosage: 184 MG
     Dates: start: 20220429, end: 20220429
  11. PACLITAXEL [Suspect]
     Active Substance: PACLITAXEL
     Dosage: 184 MG
     Dates: start: 20220506, end: 20220506
  12. PACLITAXEL [Suspect]
     Active Substance: PACLITAXEL
     Dosage: 184 MG
     Dates: start: 20220514, end: 20220514
  13. PACLITAXEL [Suspect]
     Active Substance: PACLITAXEL
     Dosage: 184 MG
     Dates: start: 20220530
  14. PACLITAXEL [Suspect]
     Active Substance: PACLITAXEL
     Dosage: 184 MG
     Dates: start: 20220606, end: 20220606
  15. PACLITAXEL [Suspect]
     Active Substance: PACLITAXEL
     Dosage: 184 MG
     Dates: start: 20220613, end: 20220613
  16. CARBOPLATIN [Suspect]
     Active Substance: CARBOPLATIN
     Indication: Triple negative breast cancer
     Dosage: 141 MG
     Dates: start: 20220303
  17. CARBOPLATIN [Suspect]
     Active Substance: CARBOPLATIN
     Dosage: 154 MG
     Dates: start: 20220310, end: 20220310
  18. CARBOPLATIN [Suspect]
     Active Substance: CARBOPLATIN
     Dosage: 139 MG
     Dates: start: 20220318, end: 20220318
  19. CARBOPLATIN [Suspect]
     Active Substance: CARBOPLATIN
     Dosage: 142 MG
     Dates: start: 20220331
  20. CARBOPLATIN [Suspect]
     Active Substance: CARBOPLATIN
     Dosage: 143 MG
     Dates: start: 20220407, end: 20220407
  21. CARBOPLATIN [Suspect]
     Active Substance: CARBOPLATIN
     Dosage: 141 MG
     Dates: start: 20220418, end: 20220418
  22. CARBOPLATIN [Suspect]
     Active Substance: CARBOPLATIN
     Dosage: 142 MG
     Dates: start: 20220429, end: 20220429
  23. CARBOPLATIN [Suspect]
     Active Substance: CARBOPLATIN
     Dosage: 148 MG
     Dates: start: 20220506, end: 20220506
  24. CARBOPLATIN [Suspect]
     Active Substance: CARBOPLATIN
     Dosage: 144 MG
     Dates: start: 20220514, end: 20220514
  25. CARBOPLATIN [Suspect]
     Active Substance: CARBOPLATIN
     Dosage: 139 MG
     Dates: start: 20220530, end: 20220530
  26. CARBOPLATIN [Suspect]
     Active Substance: CARBOPLATIN
     Dosage: 137 MG
     Dates: start: 20220606, end: 20220606
  27. CARBOPLATIN [Suspect]
     Active Substance: CARBOPLATIN
     Dosage: 134 MG
     Dates: start: 20220613, end: 20220613
  28. INVESTIGATIONAL PRODUCT [Suspect]
     Active Substance: INVESTIGATIONAL PRODUCT
     Indication: Triple negative breast cancer
     Dosage: UNK, 1X/2 WEEKS
     Route: 042
     Dates: start: 20220303, end: 20220303
  29. INVESTIGATIONAL PRODUCT [Suspect]
     Active Substance: INVESTIGATIONAL PRODUCT
     Dosage: UNK, 1X/2 WEEKS
     Route: 042
     Dates: start: 20220318, end: 20220318
  30. INVESTIGATIONAL PRODUCT [Suspect]
     Active Substance: INVESTIGATIONAL PRODUCT
     Dosage: UNK, 1X/2 WEEKS
     Route: 042
     Dates: start: 20220331, end: 20220331
  31. INVESTIGATIONAL PRODUCT [Suspect]
     Active Substance: INVESTIGATIONAL PRODUCT
     Dosage: UNK, 1X/2 WEEKS
     Route: 042
     Dates: start: 20220418, end: 20220418
  32. INVESTIGATIONAL PRODUCT [Suspect]
     Active Substance: INVESTIGATIONAL PRODUCT
     Dosage: UNK, 1X/2 WEEKS
     Route: 042
     Dates: start: 20220429, end: 20220429
  33. INVESTIGATIONAL PRODUCT [Suspect]
     Active Substance: INVESTIGATIONAL PRODUCT
     Dosage: UNK, 1X/2 WEEKS
     Route: 042
     Dates: start: 20220514, end: 20220514
  34. INVESTIGATIONAL PRODUCT [Suspect]
     Active Substance: INVESTIGATIONAL PRODUCT
     Dosage: UNK, 1X/2 WEEKS
     Route: 042
     Dates: start: 20220530, end: 20220530
  35. INVESTIGATIONAL PRODUCT [Suspect]
     Active Substance: INVESTIGATIONAL PRODUCT
     Dosage: UNK, 1X/2 WEEKS
     Route: 042
     Dates: start: 20220613, end: 20220613
  36. INVESTIGATIONAL PRODUCT [Suspect]
     Active Substance: INVESTIGATIONAL PRODUCT
     Dosage: UNK, 1X/2 WEEKS
     Route: 042
     Dates: start: 20220628, end: 20220628
  37. INVESTIGATIONAL PRODUCT [Suspect]
     Active Substance: INVESTIGATIONAL PRODUCT
     Dosage: UNK, 1X/2 WEEKS
     Route: 042
     Dates: start: 20220714, end: 20220714
  38. INVESTIGATIONAL PRODUCT [Suspect]
     Active Substance: INVESTIGATIONAL PRODUCT
     Dosage: UNK, 1X/2 WEEKS
     Route: 042
     Dates: start: 20220728, end: 20220728
  39. CYCLOPHOSPHAMIDE [Suspect]
     Active Substance: CYCLOPHOSPHAMIDE
     Indication: Triple negative breast cancer
     Dosage: 923 MG
     Dates: start: 20220628, end: 20220628
  40. CYCLOPHOSPHAMIDE [Suspect]
     Active Substance: CYCLOPHOSPHAMIDE
     Dosage: 923 MG
     Dates: start: 20220714, end: 20220714
  41. CYCLOPHOSPHAMIDE [Suspect]
     Active Substance: CYCLOPHOSPHAMIDE
     Dosage: 923 MG
     Dates: start: 20220728, end: 20220728
  42. CAPTOPRIL [Concomitant]
     Active Substance: CAPTOPRIL
     Indication: Hypertension
     Dosage: 1 TABLET, 1X/DAY
     Route: 048
     Dates: start: 2012
  43. NIFEDIPINE [Concomitant]
     Active Substance: NIFEDIPINE
     Indication: Hypertension
     Dosage: 1 TABLET, 1X/DAY
     Route: 048
     Dates: start: 2012

REACTIONS (3)
  - Alanine aminotransferase increased [Recovered/Resolved]
  - Aspartate aminotransferase increased [Recovered/Resolved]
  - Neutrophil count decreased [Recovered/Resolved]

NARRATIVE: CASE EVENT DATE: 20220810
